FAERS Safety Report 11662427 (Version 2)
Quarter: 2015Q4

REPORT INFORMATION
  Report Type: Spontaneous
  Country: JP (occurrence: JP)
  Receive Date: 20151027
  Receipt Date: 20151030
  Transmission Date: 20160304
  Serious: Yes (Hospitalization)
  Sender: FDA-Public Use
  Company Number: JP-TAKEDA-2015TJP019690

PATIENT
  Age: 85 Year
  Sex: Female
  Weight: 35 kg

DRUGS (10)
  1. PROMAC                             /01312301/ [Concomitant]
     Active Substance: NITROFURANTOIN
     Dosage: 75 MG, BID
     Route: 048
  2. TAKELDA COMBINATION TABLETS [Suspect]
     Active Substance: ASPIRIN\LANSOPRAZOLE
     Indication: ISCHAEMIC CARDIOMYOPATHY
     Dosage: 1 DF, QD
     Route: 048
     Dates: start: 20150408, end: 20150813
  3. EDIROL [Concomitant]
     Active Substance: ELDECALCITOL
     Dosage: 0.5 ?G, QD
     Route: 048
  4. BIO-THREE [Concomitant]
     Active Substance: HERBALS
     Dosage: 2 DF, BID
     Route: 048
  5. ONEALFA [Concomitant]
     Active Substance: ALFACALCIDOL
     Dosage: 0.25 ?G, QD
     Route: 048
  6. CALTAN [Concomitant]
     Active Substance: CALCIUM CARBONATE
     Dosage: 250 MG, QD
     Route: 048
  7. CRESTOR [Concomitant]
     Active Substance: ROSUVASTATIN CALCIUM
     Dosage: 2.5 MG, QD
     Route: 048
  8. MAINTATE [Concomitant]
     Active Substance: BISOPROLOL FUMARATE
     Dosage: 0.625 MG, QD
     Route: 048
  9. MAINTATE [Concomitant]
     Active Substance: BISOPROLOL FUMARATE
     Dosage: 0.156 MG, QD
     Route: 048
  10. ALDACTONE-A [Concomitant]
     Active Substance: SPIRONOLACTONE
     Dosage: 25 MG, QD
     Route: 048

REACTIONS (1)
  - Colitis microscopic [Recovered/Resolved]

NARRATIVE: CASE EVENT DATE: 20150724
